FAERS Safety Report 15311136 (Version 1)
Quarter: 2018Q3

REPORT INFORMATION
  Report Type: Spontaneous
  Country: PT (occurrence: PT)
  Receive Date: 20180823
  Receipt Date: 20180823
  Transmission Date: 20181010
  Serious: Yes (Congenital Anomaly)
  Sender: FDA-Public Use
  Company Number: PT-009507513-2008-181342-NL

PATIENT
  Sex: Male

DRUGS (1)
  1. IMPLANON [Suspect]
     Active Substance: ETONOGESTREL
     Route: 064
     Dates: start: 200801

REACTIONS (1)
  - Arnold-Chiari malformation [Unknown]

NARRATIVE: CASE EVENT DATE: 20180707
